FAERS Safety Report 9264416 (Version 1)
Quarter: 2013Q2

REPORT INFORMATION
  Report Type: Spontaneous
  Country: DE (occurrence: DE)
  Receive Date: 20130430
  Receipt Date: 20130430
  Transmission Date: 20140414
  Serious: Yes (Life-Threatening)
  Sender: FDA-Public Use
  Company Number: DE-009507513-1304DEU017301

PATIENT
  Age: 24 Year
  Sex: Male
  Weight: 62 kg

DRUGS (4)
  1. ESMERON 10 MG/ML [Suspect]
     Indication: FEELING OF RELAXATION
     Dosage: 50 MG, UNK
     Route: 042
  2. ATROPINE [Suspect]
     Dosage: 0.5 MG, UNK
     Route: 042
  3. NEOSTIGMIN [Concomitant]
     Dosage: 0.5 MG, UNK
     Route: 042
  4. SUGAMMADEX SODIUM [Concomitant]
     Dosage: 500 MG, UNK
     Route: 042

REACTIONS (3)
  - Blood creatinine increased [Recovered/Resolved]
  - Hyperkalaemia [Recovered/Resolved]
  - Metabolic acidosis [Recovered/Resolved]
